FAERS Safety Report 20780698 (Version 2)
Quarter: 2022Q2

REPORT INFORMATION
  Report Type: Spontaneous
  Country: JP (occurrence: JP)
  Receive Date: 20220504
  Receipt Date: 20220511
  Transmission Date: 20220721
  Serious: Yes (Death, Hospitalization)
  Sender: FDA-Public Use
  Company Number: JP-TEVA-2022-JP-2033132

PATIENT
  Age: 60 Year
  Sex: Male

DRUGS (7)
  1. MYCOPHENOLATE MOFETIL [Suspect]
     Active Substance: MYCOPHENOLATE MOFETIL
     Indication: Cholangitis
     Dosage: 2 GRAM DAILY;
     Route: 065
  2. PREDNISOLONE [Suspect]
     Active Substance: PREDNISOLONE
     Indication: Cholangitis
     Dosage: 1 MG/KG DAILY;
     Route: 048
  3. PREDNISOLONE [Suspect]
     Active Substance: PREDNISOLONE
     Dosage: DOSE WAS GRADUALLY DECREASED THEREAFTER
     Route: 048
  4. PREDNISOLONE [Suspect]
     Active Substance: PREDNISOLONE
     Dosage: 50 MILLIGRAM DAILY;
     Route: 048
  5. PREDNISOLONE [Suspect]
     Active Substance: PREDNISOLONE
     Dosage: 30 MILLIGRAM DAILY; THREE MONTHS LATER, THE DOSE WAS TAPERED TO 30 MG/DAY IN THE OUTPATIENT CLINIC
     Route: 048
  6. PEMBROLIZUMAB [Suspect]
     Active Substance: PEMBROLIZUMAB
     Indication: Lung cancer metastatic
     Route: 065
  7. METHYLPREDNISOLONE [Suspect]
     Active Substance: METHYLPREDNISOLONE
     Indication: Cholangitis
     Dosage: 500 MILLIGRAM DAILY;
     Route: 042

REACTIONS (2)
  - Cholangitis [Recovering/Resolving]
  - Liver abscess [Fatal]
